FAERS Safety Report 10252616 (Version 5)
Quarter: 2014Q3

REPORT INFORMATION
  Report Type: Spontaneous
  Country: BR (occurrence: BR)
  Receive Date: 20140623
  Receipt Date: 20140721
  Transmission Date: 20150326
  Serious: Yes (Death, Hospitalization)
  Sender: FDA-Public Use
  Company Number: BR-JNJFOC-20140613819

PATIENT
  Age: 34 Year
  Sex: Female
  Weight: 82 kg

DRUGS (4)
  1. VANCOMYCIN [Concomitant]
     Active Substance: VANCOMYCIN
     Indication: SEPSIS
     Route: 042
     Dates: start: 20140430
  2. REMICADE [Suspect]
     Active Substance: INFLIXIMAB
     Indication: PSORIASIS
     Dosage: 300MG TO 400MG
     Route: 042
     Dates: start: 20120526, end: 20140425
  3. IMIPENEM [Concomitant]
     Active Substance: IMIPENEM
     Indication: SEPSIS
     Route: 042
     Dates: start: 20140430
  4. CLINDAMYCIN [Concomitant]
     Active Substance: CLINDAMYCIN\CLINDAMYCIN PHOSPHATE
     Indication: SEPSIS
     Route: 042
     Dates: start: 20140430

REACTIONS (4)
  - Adverse event [Fatal]
  - Psoriasis [Fatal]
  - Bacterial infection [Fatal]
  - Septic shock [Fatal]

NARRATIVE: CASE EVENT DATE: 2013
